FAERS Safety Report 8585921-0 (Version None)
Quarter: 2012Q3

REPORT INFORMATION
  Report Type: 
  Country: None (occurrence: None)
  Receive Date: 20120810
  Receipt Date: 20120803
  Transmission Date: 20120928
  Serious: Yes (Other)
  Sender: FDA-Public Use
  Company Number: HU-UCBSA-063118

PATIENT
  Age: 32 Year
  Sex: Female

DRUGS (3)
  1. NALTREXONE HYDROCHLORIDE [Concomitant]
     Dates: start: 20120301, end: 20120720
  2. MEDROL [Concomitant]
     Dates: start: 20120202
  3. CIMZIA [Suspect]
     Dates: start: 20120507, end: 20120507

REACTIONS (1)
  - RASH GENERALISED [None]
